FAERS Safety Report 9540632 (Version 4)
Quarter: 2014Q2

REPORT INFORMATION
  Report Type: Report from Study
  Country: BR (occurrence: BR)
  Receive Date: 20130920
  Receipt Date: 20140416
  Transmission Date: 20141212
  Serious: Yes (Hospitalization)
  Sender: FDA-Public Use
  Company Number: PHHO2013BR011790

PATIENT
  Age: 70 Year
  Sex: Female
  Weight: 44.7 kg

DRUGS (9)
  1. BLINDED GP2013 [Suspect]
     Indication: NON-HODGKIN^S LYMPHOMA
     Dosage: CODE NOT BROKEN
     Route: 042
     Dates: start: 20130419
  2. BLINDED MABTHERA [Suspect]
     Indication: NON-HODGKIN^S LYMPHOMA
     Dosage: CODE NOT BROKEN
     Route: 042
     Dates: start: 20130419
  3. BLINDED NO TREATMENT RECEIVED [Suspect]
     Indication: NON-HODGKIN^S LYMPHOMA
     Dosage: CODE NOT BROKEN
     Route: 042
     Dates: start: 20130419
  4. VINCRISTINE [Suspect]
     Indication: CHEMOTHERAPY
     Dosage: 1.4 MG/M2, UNK
     Route: 042
     Dates: start: 20130319
  5. PREDNISONE [Suspect]
     Indication: CHEMOTHERAPY
     Dosage: 100 MG, OD
     Route: 048
     Dates: start: 20130319
  6. CYCLOPHOSPHAMIDE [Suspect]
     Indication: CHEMOTHERAPY
     Dosage: 750 MG/M2, UNK
     Route: 042
     Dates: start: 20130319
  7. ENALAPRIL [Concomitant]
     Indication: HYPERTENSION
     Dosage: 10 MG,
  8. LEVOTIROXIN [Concomitant]
     Indication: HYPOTHYROIDISM
     Dosage: 50 UG, QD
  9. SINVASTATINA [Concomitant]
     Indication: DYSLIPIDAEMIA
     Dosage: 20 MG, QD

REACTIONS (2)
  - Febrile neutropenia [Recovered/Resolved]
  - Leukopenia [Recovered/Resolved]
